FAERS Safety Report 13641305 (Version 1)
Quarter: 2017Q2

REPORT INFORMATION
  Report Type: Spontaneous
  Country: US (occurrence: US)
  Receive Date: 20170609
  Receipt Date: 20170609
  Transmission Date: 20170830
  Serious: Yes (Disabling)
  Sender: FDA-Public Use
  Company Number: None

PATIENT
  Age: 66 Year
  Sex: Female
  Weight: 55.35 kg

DRUGS (1)
  1. CIPROFLOXACN 500MG TAB TEV PLIVA HRVATSKA D.O.O. ZAGREB CROATIA FOR TEVA PHARM [Suspect]
     Active Substance: CIPROFLOXACIN
     Indication: URINARY TRACT INFECTION
     Dosage: ?          QUANTITY:1 TABLET(S);?
     Route: 048
     Dates: start: 20170602, end: 20170605

REACTIONS (3)
  - Pain in extremity [None]
  - Muscular weakness [None]
  - Paraesthesia [None]

NARRATIVE: CASE EVENT DATE: 20170607
